FAERS Safety Report 24541187 (Version 3)
Quarter: 2024Q4

REPORT INFORMATION
  Report Type: Spontaneous
  Country: IT (occurrence: IT)
  Receive Date: 20241023
  Receipt Date: 20241121
  Transmission Date: 20250114
  Serious: Yes (Death, Other)
  Sender: DAIICHI
  Company Number: IT-DSJP-DS-2024-103329-IT

PATIENT
  Age: 70 Year
  Sex: Male

DRUGS (1)
  1. TRASTUZUMAB DERUXTECAN [Suspect]
     Active Substance: TRASTUZUMAB DERUXTECAN
     Indication: Metastatic gastric cancer
     Dosage: 5.4 MG/KG, CYCLIC (15 CYCLES)
     Route: 065
     Dates: start: 202301, end: 202312

REACTIONS (7)
  - Metastases to liver [Fatal]
  - Disease progression [Fatal]
  - Neutropenia [Recovered/Resolved]
  - Leukopenia [Recovered/Resolved]
  - Nausea [Recovered/Resolved]
  - Asthenia [Not Recovered/Not Resolved]
  - Intentional product use issue [Recovered/Resolved]

NARRATIVE: CASE EVENT DATE: 20230101
